FAERS Safety Report 7040832-7 (Version None)
Quarter: 2010Q4

REPORT INFORMATION
  Report Type: 
  Country: None (occurrence: None)
  Receive Date: 20101013
  Receipt Date: 20100412
  Transmission Date: 20110411
  Serious: Yes (Hospitalization)
  Sender: FDA-Public Use
  Company Number: US-ASTRAZENECA-2009SE12615

PATIENT
  Age: 39 Year
  Sex: Male

DRUGS (4)
  1. SEROQUEL [Suspect]
     Dosage: 400-1000 MG
     Route: 048
     Dates: start: 20030101
  2. FLUOXETINE [Concomitant]
     Dates: start: 20080303
  3. TRAZODONE HCL [Concomitant]
     Dates: start: 20080303
  4. LEVOTHYROXINE [Concomitant]
     Indication: HYPOTHYROIDISM
     Dates: start: 20060421

REACTIONS (5)
  - DIABETES MELLITUS [None]
  - INFLAMMATION [None]
  - SLEEP APNOEA SYNDROME [None]
  - THROMBOSIS [None]
  - WEIGHT INCREASED [None]
